FAERS Safety Report 10392511 (Version 2)
Quarter: 2015Q1

REPORT INFORMATION
  Report Type: Report from Study
  Country: GB (occurrence: GB)
  Receive Date: 20140819
  Receipt Date: 20150213
  Transmission Date: 20150720
  Serious: Yes (Death)
  Sender: FDA-Public Use
  Company Number: GB-JNJFOC-20140509149

PATIENT
  Age: 70 Year
  Sex: Male
  Weight: 91.8 kg

DRUGS (10)
  1. ABIRATERONE ACETATE [Suspect]
     Active Substance: ABIRATERONE ACETATE
     Indication: PROSTATE CANCER METASTATIC
     Route: 048
     Dates: start: 20121210, end: 20140503
  2. TAMSULOSIN [Concomitant]
     Active Substance: TAMSULOSIN
     Route: 048
     Dates: start: 20120711, end: 20140504
  3. LANSOPRAZOLE. [Concomitant]
     Active Substance: LANSOPRAZOLE
     Route: 048
     Dates: start: 20071112, end: 20140504
  4. SIMVASTATIN. [Concomitant]
     Active Substance: SIMVASTATIN
     Route: 048
     Dates: start: 20080909, end: 20140504
  5. ATENOLOL. [Concomitant]
     Active Substance: ATENOLOL
     Route: 048
     Dates: start: 19901005, end: 20140504
  6. ISMO [Concomitant]
     Active Substance: ISOSORBIDE MONONITRATE
     Route: 048
     Dates: end: 20140504
  7. ZOLADEX [Suspect]
     Active Substance: GOSERELIN ACETATE
     Indication: PROSTATE CANCER METASTATIC
     Dosage: DATE OF MOST RECENT ADMINISTRATION- 05-03-2014
     Route: 058
     Dates: start: 20121024
  8. CLARITHROMYCIN. [Concomitant]
     Active Substance: CLARITHROMYCIN
     Route: 048
     Dates: start: 20140502, end: 20140503
  9. ALLOPURINOL. [Concomitant]
     Active Substance: ALLOPURINOL
     Route: 048
     Dates: start: 20000621, end: 20140504
  10. RAMIPRIL. [Concomitant]
     Active Substance: RAMIPRIL
     Route: 048
     Dates: start: 20050518, end: 20140504

REACTIONS (1)
  - Cerebrovascular accident [Fatal]

NARRATIVE: CASE EVENT DATE: 20140503
